FAERS Safety Report 6001066-8 (Version None)
Quarter: 2008Q4

REPORT INFORMATION
  Report Type: 
  Country: None (occurrence: None)
  Receive Date: 20081215
  Receipt Date: 20071210
  Transmission Date: 20090506
  Serious: No
  Sender: FDA-Public Use
  Company Number: US-AMGEN-KDL245772

PATIENT
  Sex: Female

DRUGS (2)
  1. ENBREL [Suspect]
     Indication: PSORIATIC ARTHROPATHY
     Route: 058
     Dates: start: 20070220
  2. ENBREL [Suspect]
     Indication: PSORIASIS

REACTIONS (4)
  - ALOPECIA [None]
  - LIP ULCERATION [None]
  - NASOPHARYNGITIS [None]
  - PSORIATIC ARTHROPATHY [None]
